FAERS Safety Report 7742880-8 (Version None)
Quarter: 2011Q3

REPORT INFORMATION
  Report Type: 
  Country: None (occurrence: None)
  Receive Date: 20110912
  Receipt Date: 20110901
  Transmission Date: 20111222
  Serious: Yes (Hospitalization, Other)
  Sender: FDA-Public Use
  Company Number: US-ASTRAZENECA-2011SE52620

PATIENT
  Age: 59 Year
  Sex: Female

DRUGS (6)
  1. LIPITOR [Concomitant]
     Indication: CHRONIC OBSTRUCTIVE PULMONARY DISEASE
     Dosage: UNKNOWN DOSE ONCE
     Route: 048
  2. ADVIR [Concomitant]
     Indication: CHRONIC OBSTRUCTIVE PULMONARY DISEASE
     Dosage: 1 PUFF TID
     Route: 055
  3. GLITIIZDE [Concomitant]
     Indication: DIABETES MELLITUS
     Route: 048
  4. COMBIVENT [Concomitant]
     Indication: CHRONIC OBSTRUCTIVE PULMONARY DISEASE
     Dosage: 1 NEB Q4H
     Route: 055
  5. CRESTOR [Suspect]
     Route: 048
     Dates: start: 20110401
  6. VALPROIC ACID [Concomitant]

REACTIONS (12)
  - ABDOMINAL PAIN [None]
  - RENAL FAILURE [None]
  - ACTIVITIES OF DAILY LIVING IMPAIRED [None]
  - RASH [None]
  - INSOMNIA [None]
  - ABASIA [None]
  - WEIGHT DECREASED [None]
  - ALCOHOL POISONING [None]
  - DEMENTIA ALZHEIMER'S TYPE [None]
  - BIPOLAR DISORDER [None]
  - APHAGIA [None]
  - MANIA [None]
